FAERS Safety Report 7105915-1 (Version None)
Quarter: 2010Q4

REPORT INFORMATION
  Report Type: 
  Country: None (occurrence: None)
  Receive Date: 20101116
  Receipt Date: 20101108
  Transmission Date: 20110411
  Serious: Yes (Disabling)
  Sender: FDA-Public Use
  Company Number: B0683366A

PATIENT
  Age: 84 Year
  Sex: Female
  Weight: 55 kg

DRUGS (9)
  1. CO-AMOXICLAV [Suspect]
     Dosage: 3IUAX PER DAY
     Route: 048
     Dates: start: 20101007, end: 20101014
  2. CO-AMILOFRUSE [Suspect]
     Dosage: 1IUAX PER DAY
     Route: 048
     Dates: start: 20101007, end: 20101101
  3. ASPIRIN [Concomitant]
  4. LANSOPRAZOLE [Concomitant]
  5. MIRTAZAPINE [Concomitant]
  6. PARACETAMOL [Concomitant]
  7. FOLIC ACID [Concomitant]
  8. LACTULOSE [Concomitant]
  9. LOPERAMIDE [Concomitant]

REACTIONS (4)
  - PROCEDURAL PAIN [None]
  - PROCEDURAL SITE REACTION [None]
  - RASH MACULAR [None]
  - WOUND SECRETION [None]
